FAERS Safety Report 16959240 (Version 1)
Quarter: 2019Q4

REPORT INFORMATION
  Report Type: Spontaneous
  Country: US (occurrence: US)
  Receive Date: 20191024
  Receipt Date: 20191024
  Transmission Date: 20200122
  Serious: Yes (Hospitalization)
  Sender: FDA-Public Use
  Company Number: US-ASTRAZENECA-2019SF50476

PATIENT
  Age: 817 Day
  Sex: Female
  Weight: 12.7 kg

DRUGS (12)
  1. SODIUM CHLORIDE. [Concomitant]
     Active Substance: SODIUM CHLORIDE
     Dosage: 0.9% UNKNOWN
  2. ASPIRIN. [Concomitant]
     Active Substance: ASPIRIN
     Dosage: 100.0% UNKNOWN
  3. SPRINOLACTONE [Concomitant]
     Dosage: 100.0% UNKNOWN
  4. BETHANECHOL CHLORIDE. [Concomitant]
     Active Substance: BETHANECHOL CHLORIDE
     Dosage: 10.0MG UNKNOWN
  5. DIGOXIN. [Concomitant]
     Active Substance: DIGOXIN
     Dosage: 125.0UG UNKNOWN
  6. TRACLEER [Concomitant]
     Active Substance: BOSENTAN
  7. SILDENAFIL. [Concomitant]
     Active Substance: SILDENAFIL
  8. SYNAGIS [Suspect]
     Active Substance: PALIVIZUMAB
     Indication: PREMATURE BABY
     Route: 030
  9. ENOXAPARIN [Concomitant]
     Active Substance: ENOXAPARIN
  10. CHLOROTHIAZIDE. [Concomitant]
     Active Substance: CHLOROTHIAZIDE
     Dosage: 250.0MG UNKNOWN
  11. OMEPRAZOLE. [Concomitant]
     Active Substance: OMEPRAZOLE
     Dosage: 20.0MG UNKNOWN
  12. LASIX [Concomitant]
     Active Substance: FUROSEMIDE
     Dosage: 20.0MG UNKNOWN

REACTIONS (2)
  - Diarrhoea [Unknown]
  - Pyrexia [Unknown]

NARRATIVE: CASE EVENT DATE: 20191014
